FAERS Safety Report 4768957-7 (Version None)
Quarter: 2005Q3

REPORT INFORMATION
  Report Type: 
  Country: None (occurrence: None)
  Receive Date: 20050913
  Receipt Date: 20050901
  Transmission Date: 20060218
  Serious: No
  Sender: FDA-Public Use
  Company Number: 2005SRR-00701

PATIENT
  Sex: Male

DRUGS (1)
  1. IBUPROFEN [Suspect]
     Dates: start: 20041126, end: 20041127

REACTIONS (12)
  - ABDOMINAL DISTENSION [None]
  - ABDOMINAL PAIN [None]
  - ABDOMINAL PAIN UPPER [None]
  - CONSTIPATION [None]
  - DEHYDRATION [None]
  - DIALYSIS [None]
  - DISCOMFORT [None]
  - INTESTINAL FUNCTIONAL DISORDER [None]
  - PAIN [None]
  - RENAL FAILURE [None]
  - URINARY RETENTION [None]
  - VOMITING [None]
